FAERS Safety Report 5881399-6 (Version None)
Quarter: 2008Q3

REPORT INFORMATION
  Report Type: 
  Country: None (occurrence: None)
  Receive Date: 20080912
  Receipt Date: 20080626
  Transmission Date: 20090109
  Serious: No
  Sender: FDA-Public Use
  Company Number: US-ABBOTT-08P-163-0460055-00

PATIENT
  Sex: Female
  Weight: 97.61 kg

DRUGS (9)
  1. HUMIRA [Suspect]
     Indication: RHEUMATOID ARTHRITIS
     Dates: start: 20071008, end: 20080628
  2. HUMIRA [Suspect]
     Route: 050
     Dates: start: 20080628
  3. METHOTREXATE [Concomitant]
     Indication: RHEUMATOID ARTHRITIS
     Route: 048
  4. PREDNISONE TAB [Concomitant]
     Indication: RHEUMATOID ARTHRITIS
     Route: 048
  5. LISINOPRIL [Concomitant]
     Indication: BLOOD PRESSURE
     Route: 048
  6. IBUPROFEN [Concomitant]
     Indication: PAIN
  7. CYCLOBENZAPRINE HCL [Concomitant]
     Indication: PAIN
     Route: 048
  8. VITAMIN TAB [Concomitant]
     Indication: VITAMIN SUPPLEMENTATION
  9. ERGOCALCIFEROL [Concomitant]
     Indication: VITAMIN SUPPLEMENTATION
     Route: 048

REACTIONS (2)
  - DRUG INEFFECTIVE [None]
  - PAIN [None]
